FAERS Safety Report 22379232 (Version 1)
Quarter: 2023Q2

REPORT INFORMATION
  Report Type: Spontaneous
  Country: US (occurrence: US)
  Receive Date: 20230529
  Receipt Date: 20230529
  Transmission Date: 20230721
  Serious: No
  Sender: FDA-Public Use
  Company Number: US-BIOVITRUM-2023-US-011215

PATIENT
  Age: 37 Year
  Sex: Male

DRUGS (2)
  1. NITISINONE [Suspect]
     Active Substance: NITISINONE
     Indication: Alkaptonuria
     Dosage: 2 MG DAILY
  2. NITISINONE [Suspect]
     Active Substance: NITISINONE
     Dosage: 1 MG WEEKLY

REACTIONS (3)
  - Amino acid level increased [Recovered/Resolved]
  - Rash maculo-papular [Recovered/Resolved]
  - Off label use [Unknown]
